FAERS Safety Report 6410121-X (Version None)
Quarter: 2009Q4

REPORT INFORMATION
  Report Type: 
  Country: None (occurrence: None)
  Receive Date: 20091022
  Receipt Date: 20091013
  Transmission Date: 20100525
  Serious: Yes (Hospitalization)
  Sender: FDA-Public Use
  Company Number: DE-ABBOTT-09P-062-0557978-00

PATIENT
  Sex: Female
  Weight: 66 kg

DRUGS (4)
  1. HUMIRA [Suspect]
     Indication: ANKYLOSING SPONDYLITIS
     Route: 058
     Dates: start: 20080911, end: 20080925
  2. HUMIRA [Suspect]
     Indication: CROHN'S DISEASE
     Route: 058
     Dates: start: 20081024, end: 20090116
  3. L-THYROXIN [Suspect]
     Indication: ANKYLOSING SPONDYLITIS
     Dosage: 15MG PER WEEK
     Route: 048
  4. METHOTREXAT [Concomitant]
     Indication: ANKYLOSING SPONDYLITIS
     Dosage: 15MG PER WEEK
     Dates: start: 20000101

REACTIONS (2)
  - CYST [None]
  - LYMPHADENOPATHY [None]
